FAERS Safety Report 14351202 (Version 2)
Quarter: 2018Q3

REPORT INFORMATION
  Report Type: Spontaneous
  Country: US (occurrence: US)
  Receive Date: 20180104
  Receipt Date: 20180801
  Transmission Date: 20181010
  Serious: No
  Sender: FDA-Public Use
  Company Number: US-PFIZER INC-2018003519

PATIENT
  Sex: Female
  Weight: 69.84 kg

DRUGS (1)
  1. GABAPENTIN. [Suspect]
     Active Substance: GABAPENTIN
     Indication: NEUROPATHY PERIPHERAL
     Dosage: INCREASE HER DOSE TO 3 A DAY
     Dates: start: 2017, end: 201712

REACTIONS (3)
  - Peripheral swelling [Recovering/Resolving]
  - Weight increased [Unknown]
  - Drug ineffective for unapproved indication [Unknown]
